FAERS Safety Report 6393298-4 (Version None)
Quarter: 2009Q4

REPORT INFORMATION
  Report Type: 
  Country: None (occurrence: None)
  Receive Date: 20091008
  Receipt Date: 20090925
  Transmission Date: 20100525
  Serious: Yes (Other)
  Sender: FDA-Public Use
  Company Number: PHHY2009FR39189

PATIENT
  Sex: Male
  Weight: 70 kg

DRUGS (2)
  1. LAMISIL [Suspect]
     Indication: ONYCHOMYCOSIS
     Dosage: 250 MG, QD
     Route: 048
     Dates: start: 20090101, end: 20090105
  2. LAMISIL [Suspect]
     Dosage: 250 MG, QD
     Route: 048
     Dates: start: 20090608, end: 20090610

REACTIONS (5)
  - ASTHENIA [None]
  - DIZZINESS [None]
  - FATIGUE [None]
  - HALLUCINATION [None]
  - HYPERHIDROSIS [None]
